FAERS Safety Report 5911458-0 (Version None)
Quarter: 2008Q4

REPORT INFORMATION
  Report Type: 
  Country: None (occurrence: None)
  Receive Date: 20081007
  Receipt Date: 20080925
  Transmission Date: 20090506
  Serious: Yes (Life-Threatening, Hospitalization, Other)
  Sender: FDA-Public Use
  Company Number: GB-PFIZER INC-2008081903

PATIENT
  Age: 75 Year
  Sex: Female

DRUGS (7)
  1. GABAPENTIN [Suspect]
     Indication: ARTHRALGIA
  2. AMLODIPINE [Concomitant]
  3. DICLOFENAC [Concomitant]
  4. DIHYDROCODEINE BITARTRATE INJ [Concomitant]
  5. FUROSEMIDE [Concomitant]
  6. IRBESARTAN [Concomitant]
  7. TRAMADOL HCL [Concomitant]

REACTIONS (20)
  - ALANINE AMINOTRANSFERASE INCREASED [None]
  - ANAEMIA [None]
  - BODY TEMPERATURE INCREASED [None]
  - CONTINUOUS HAEMODIAFILTRATION [None]
  - CONTUSION [None]
  - DRUG TOXICITY [None]
  - FALL [None]
  - GAMMA-GLUTAMYLTRANSFERASE INCREASED [None]
  - GENERAL PHYSICAL HEALTH DETERIORATION [None]
  - HYPOTENSION [None]
  - IMPAIRED SELF-CARE [None]
  - LIVER FUNCTION TEST ABNORMAL [None]
  - LOSS OF CONSCIOUSNESS [None]
  - OSTEOARTHRITIS [None]
  - RENAL CYST [None]
  - RENAL FAILURE [None]
  - RESPIRATORY RATE INCREASED [None]
  - SEPTIC SHOCK [None]
  - TENDERNESS [None]
  - URAEMIC ENCEPHALOPATHY [None]
